FAERS Safety Report 22005309 (Version 2)
Quarter: 2023Q1

REPORT INFORMATION
  Report Type: Spontaneous
  Country: GB (occurrence: GB)
  Receive Date: 20230217
  Receipt Date: 20230318
  Transmission Date: 20230417
  Serious: Yes (Other)
  Sender: FDA-Public Use
  Company Number: None

PATIENT
  Age: 72 Year
  Sex: Male
  Weight: 72 kg

DRUGS (6)
  1. ATORVASTATIN [Suspect]
     Active Substance: ATORVASTATIN
     Indication: Ill-defined disorder
     Dosage: 10 MILLIGRAM DAILY; 10 MG, OD
     Route: 065
     Dates: start: 20221213
  2. AMOXICILLIN [Concomitant]
     Active Substance: AMOXICILLIN
     Indication: Ill-defined disorder
     Dosage: 3 DOSAGE FORMS DAILY; RESCUE PACK.
     Dates: start: 20221208, end: 20221215
  3. KETOCONAZOLE [Concomitant]
     Active Substance: KETOCONAZOLE
     Indication: Ill-defined disorder
     Dosage: USE AS DIRECTED
     Dates: start: 20211123, end: 20221118
  4. FLUTICASONE FUROATE\VILANTEROL TRIFENATATE [Concomitant]
     Active Substance: FLUTICASONE FUROATE\VILANTEROL TRIFENATATE
     Indication: Ill-defined disorder
     Dosage: 1 DOSAGE FORMS DAILY;
     Route: 055
     Dates: start: 20211122
  5. ALBUTEROL [Concomitant]
     Active Substance: ALBUTEROL
     Indication: Ill-defined disorder
     Dosage: FREQUENCY TIME : AS REQUIRED
     Route: 055
     Dates: start: 20211122
  6. TIOTROPIUM [Concomitant]
     Active Substance: TIOTROPIUM
     Indication: Ill-defined disorder
     Dosage: INHALE THE CONTENTS OF ONE CAPSULE VIA THE HAND
     Route: 055
     Dates: start: 20211122

REACTIONS (1)
  - Lupus-like syndrome [Unknown]

NARRATIVE: CASE EVENT DATE: 20230206
